FAERS Safety Report 4579110-4 (Version None)
Quarter: 2005Q1

REPORT INFORMATION
  Report Type: 
  Country: None (occurrence: None)
  Receive Date: 20050119
  Receipt Date: 20040830
  Transmission Date: 20050727
  Serious: Yes (Death, Hospitalization)
  Sender: FDA-Public Use
  Company Number: A03200403007

PATIENT
  Age: 60 Year
  Sex: Male

DRUGS (8)
  1. PLAVIX [Suspect]
     Indication: STENT PLACEMENT
     Dosage: 75 MG QD - ORAL
     Route: 048
     Dates: start: 20020322
  2. ISOSORBIDE DINITRATE [Concomitant]
  3. ATORVASTATIN CALCIUM [Concomitant]
  4. ENALAPRIL MALEATE [Concomitant]
  5. OMEPRAZOLE [Concomitant]
  6. ACETYLSALICYLIC ACID SRT [Concomitant]
  7. DESMOPRESSIN [Concomitant]
  8. ACETYLSALICYLIC ACID SRT [Concomitant]

REACTIONS (3)
  - HAEMORRHAGE INTRACRANIAL [None]
  - HEADACHE [None]
  - VISION BLURRED [None]
